FAERS Safety Report 19408609 (Version 1)
Quarter: 2021Q2

REPORT INFORMATION
  Report Type: Spontaneous
  Country: US (occurrence: US)
  Receive Date: 20210612
  Receipt Date: 20210612
  Transmission Date: 20210717
  Serious: No
  Sender: FDA-Public Use
  Company Number: US-TEVA-2021-US-1915339

PATIENT
  Age: 50 Year
  Sex: Male

DRUGS (1)
  1. AUSTEDO [Suspect]
     Active Substance: DEUTETRABENAZINE
     Indication: TOURETTE^S DISORDER
     Route: 065

REACTIONS (2)
  - Tic [Recovered/Resolved]
  - Off label use [Unknown]
